FAERS Safety Report 7057741-X (Version None)
Quarter: 2010Q4

REPORT INFORMATION
  Report Type: 
  Country: None (occurrence: None)
  Receive Date: 20101022
  Receipt Date: 20101014
  Transmission Date: 20110411
  Serious: Yes (Other)
  Sender: FDA-Public Use
  Company Number: US-PFIZER INC-2010131338

PATIENT
  Sex: Male
  Weight: 92.971 kg

DRUGS (5)
  1. LIPITOR [Suspect]
     Indication: BLOOD CHOLESTEROL INCREASED
     Dosage: 20 MG, DAILY
     Route: 048
     Dates: start: 20100119, end: 20100101
  2. LEVOTHYROXINE SODIUM [Concomitant]
     Indication: THYROID DISORDER
     Dosage: 150 MG, DAILY
  3. LIOTHYRONINE [Concomitant]
     Indication: THYROID DISORDER
     Dosage: 5 UG, UNK
  4. LANTUS [Concomitant]
     Indication: DIABETES MELLITUS
     Dosage: 66 IU, 1X/DAY, IN MORNING
  5. LANTUS [Concomitant]
     Dosage: 52 IU, 1X/DAY, AT NIGHT

REACTIONS (5)
  - ASTHENIA [None]
  - BALANCE DISORDER [None]
  - CONVULSION [None]
  - GAIT DISTURBANCE [None]
  - MUSCULAR WEAKNESS [None]
